FAERS Safety Report 16860843 (Version 1)
Quarter: 2019Q3

REPORT INFORMATION
  Report Type: Spontaneous
  Country: NL (occurrence: NL)
  Receive Date: 20190927
  Receipt Date: 20190927
  Transmission Date: 20191005
  Serious: Yes (Hospitalization)
  Sender: FDA-Public Use
  Company Number: NL-TEVA-2019-NL-1113469

PATIENT
  Age: 23 Year
  Sex: Male
  Weight: 76 kg

DRUGS (8)
  1. OXAZEPAM TABLET 10MG [Concomitant]
     Dosage: ORAL IF NECESSARY 1 X PER DAY 1 PIECE
  2. COTRIMOXAZOL 480 TABLET 80/400MG [Concomitant]
     Dosage: ORAL 1 X PER DAY 1 PIECE
  3. METOCLOPRAMIDE TABLET 10MG [Concomitant]
     Active Substance: METOCLOPRAMIDE
     Dosage: ORAL IF NECESSARY 3 X PER DAY 1 PIECE
  4. MACROGOL/ZOUTEN PDR V DRANK (MOVIC/MOLAX/LAXT/GEN) [Concomitant]
     Dosage: ORAL 1 X PER DAY 1 PIECE IF NECESSARY
  5. ESOMEPRAZOL TABLET MSR 40MG [Concomitant]
     Dosage: ORAL 1 X PER DAY 1 PIECE
  6. VALACYCLOVIR [Concomitant]
     Active Substance: VALACYCLOVIR HYDROCHLORIDE
     Dosage: ORAL 2 X PER DAY 1 PIECE
  7. METHOTREXAAT INJECTIEVLOEISTOF, 25 MG/ML (MILLIGRAM PER MILLILITER) [Suspect]
     Active Substance: METHOTREXATE
     Indication: ACUTE LYMPHOCYTIC LEUKAEMIA
     Dosage: 1DD 15 MILLIGRAM
     Dates: start: 20190501, end: 20190513
  8. FLUCONAZOL CAPSULE 50MG [Concomitant]
     Dosage: ORAL 1 X PER DAY 1 PIECE

REACTIONS (4)
  - Nausea [Recovering/Resolving]
  - Nephropathy toxic [Recovering/Resolving]
  - Flank pain [Recovering/Resolving]
  - Renal impairment [Recovering/Resolving]

NARRATIVE: CASE EVENT DATE: 20190807
